FAERS Safety Report 7007072-9 (Version None)
Quarter: 2010Q3

REPORT INFORMATION
  Report Type: 
  Country: None (occurrence: None)
  Receive Date: 20100920
  Receipt Date: 20100903
  Transmission Date: 20110219
  Serious: Yes (Other)
  Sender: FDA-Public Use
  Company Number: AUR-APL-2010-02263

PATIENT
  Age: 67 Year
  Sex: Male
  Weight: 104 kg

DRUGS (7)
  1. HYDROCHLOROTHIAZIDE [Suspect]
     Dosage: 25MG-DAILY-ORAL
     Route: 048
     Dates: end: 20100801
  2. TIKOSYN [Suspect]
     Indication: ATRIAL FIBRILLATION
     Dosage: 500UG-BID-ORAL
     Route: 048
     Dates: start: 20091001, end: 20100903
  3. COUMADIN [Concomitant]
  4. COZAAR [Concomitant]
  5. METOPROLOL TARTRATE [Concomitant]
  6. CRESTOR [Concomitant]
  7. MULTI-VITAMIN [Concomitant]

REACTIONS (4)
  - ATRIAL FIBRILLATION [None]
  - PNEUMONIA [None]
  - PULMONARY FIBROSIS [None]
  - PULMONARY TOXICITY [None]
